FAERS Safety Report 7493942-4 (Version None)
Quarter: 2011Q2

REPORT INFORMATION
  Report Type: 
  Country: None (occurrence: None)
  Receive Date: 20110520
  Receipt Date: 20110512
  Transmission Date: 20111010
  Serious: Yes (Hospitalization, Other)
  Sender: FDA-Public Use
  Company Number: JP-PFIZER INC-2011073459

PATIENT
  Age: 75 Year
  Sex: Male

DRUGS (19)
  1. POLARAMINE [Concomitant]
     Indication: URTICARIA
     Dosage: 2 MG, 1X/DAY
     Route: 048
     Dates: end: 20110329
  2. GLYCERIN [Concomitant]
     Indication: CONSTIPATION
     Dosage: 120 MG, 1X/DAY
     Route: 054
     Dates: start: 20020101
  3. ZYVOX [Suspect]
     Indication: PNEUMONIA STAPHYLOCOCCAL
     Dosage: 1200 MG, 1X/DAY
     Route: 048
     Dates: start: 20110319, end: 20110325
  4. BANAN [Suspect]
     Indication: PNEUMONIA STAPHYLOCOCCAL
     Dosage: UNK
     Route: 048
     Dates: start: 20110312, end: 20110319
  5. HOKUNALIN [Concomitant]
     Indication: BRONCHITIS
     Dosage: 2 MG, 1X/DAY
     Route: 062
     Dates: start: 20090404, end: 20110329
  6. LAXOBERON [Concomitant]
     Indication: CONSTIPATION
     Dosage: UNK
     Route: 048
     Dates: start: 20020101
  7. SIGMART [Concomitant]
     Indication: ANGINA PECTORIS
     Dosage: 5 MG, 3X/DAY
     Route: 048
     Dates: start: 20020101
  8. DIGOSIN [Concomitant]
     Indication: ATRIAL FIBRILLATION
     Dosage: 0.125 MG, 1X/DAY
     Route: 048
     Dates: start: 20070101
  9. CANDESARTAN CILEXETIL [Concomitant]
     Indication: HYPERTENSION
     Dosage: 2 MG, 1X/DAY
     Route: 048
     Dates: start: 20070101
  10. ASPIRIN [Concomitant]
     Indication: CEREBRAL INFARCTION
     Dosage: 0.1 G, 1X/DAY
     Route: 048
     Dates: start: 20020101
  11. CARBIDOPA AND LEVODOPA [Concomitant]
     Indication: PARKINSON'S DISEASE
     Dosage: 50 MG, 2X/DAY
     Route: 048
     Dates: start: 20070201
  12. LASIX [Concomitant]
     Indication: CARDIAC FAILURE
     Dosage: 40 MG, 1X/DAY
     Route: 048
     Dates: start: 20070101
  13. FAMOTIDINE [Concomitant]
     Indication: GASTRITIS
     Dosage: 20 MG, 1X/DAY
     Route: 048
     Dates: start: 20080301
  14. GASMOTIN [Concomitant]
     Indication: GASTRITIS
     Dosage: 5 MG, 3X/DAY
     Route: 048
     Dates: start: 20080618, end: 20110329
  15. GASCON [Concomitant]
     Indication: GASTRITIS
     Dosage: 40 MG, 3X/DAY
     Route: 048
     Dates: end: 20110329
  16. MAGNESIUM OXIDE [Concomitant]
     Indication: CONSTIPATION
     Dosage: 0.5 G, 3X/DAY
     Route: 048
     Dates: start: 20040501, end: 20110329
  17. ALOSENN [Concomitant]
     Indication: CONSTIPATION
     Dosage: 0.5 MG, 3X/DAY
     Route: 048
     Dates: start: 20040501
  18. MUCOSIL-10 [Concomitant]
     Indication: BRONCHITIS
     Dosage: 15 MG, 3X/DAY
     Route: 048
     Dates: start: 20080601, end: 20110329
  19. ALDACTONE [Concomitant]
     Indication: CARDIAC FAILURE
     Dosage: 25 MG, 1X/DAY
     Route: 048
     Dates: start: 20070101

REACTIONS (2)
  - THROMBOCYTOPENIA [None]
  - RENAL FAILURE ACUTE [None]
